FAERS Safety Report 4817582-8 (Version None)
Quarter: 2005Q4

REPORT INFORMATION
  Report Type: 
  Country: None (occurrence: None)
  Receive Date: 20051031
  Receipt Date: 20051021
  Transmission Date: 20060501
  Serious: Yes (Other)
  Sender: FDA-Public Use
  Company Number: 2005-10-1222

PATIENT
  Sex: Female

DRUGS (2)
  1. VIRAFERONPEG [Suspect]
  2. REBETOL [Suspect]

REACTIONS (1)
  - HEMIANOPIA HOMONYMOUS [None]
